FAERS Safety Report 9924301 (Version 1)
Quarter: 2014Q1

REPORT INFORMATION
  Report Type: Spontaneous
  Country: US (occurrence: US)
  Receive Date: 20140226
  Receipt Date: 20140226
  Transmission Date: 20141002
  Serious: No
  Sender: FDA-Public Use
  Company Number: US-009507513-1402USA005366

PATIENT
  Sex: Female

DRUGS (11)
  1. PEGINTRON [Suspect]
     Indication: HEPATITIS C
     Dosage: UNK, QW
     Dates: start: 20131231
  2. PEGINTRON [Suspect]
     Dosage: UNK
  3. REBETOL [Suspect]
     Indication: HEPATITIS C
     Dosage: 400 MG, BID
     Route: 048
     Dates: start: 20131231
  4. GABAPENTIN [Concomitant]
     Dosage: 900 MG, UNK
  5. NAPROXEN SODIUM [Concomitant]
     Dosage: DOSE: 1000MG, UNK
  6. SOMA [Concomitant]
     Dosage: 350 MG, UNK
  7. XANAX [Concomitant]
     Dosage: 0.5 MG, UNK
  8. FISH OIL [Concomitant]
     Dosage: UNK
  9. VITAMIN B (UNSPECIFIED) [Concomitant]
     Dosage: DOSE: 2000 MG, UNK
  10. MAGNESIUM (UNSPECIFIED) [Concomitant]
     Dosage: 500 MG, UNK
  11. VITAMIN B COMPLEX [Concomitant]

REACTIONS (13)
  - Overdose [Unknown]
  - Erythema [Unknown]
  - Solar lentigo [Unknown]
  - Back pain [Unknown]
  - Sleep disorder [Unknown]
  - Pruritus [Unknown]
  - Dry skin [Unknown]
  - Insomnia [Unknown]
  - Injection site erythema [Unknown]
  - Weight decreased [Unknown]
  - Chills [Unknown]
  - Pyrexia [Unknown]
  - Pain [Unknown]
